FAERS Safety Report 7419839-3 (Version None)
Quarter: 2011Q2

REPORT INFORMATION
  Report Type: 
  Country: None (occurrence: None)
  Receive Date: 20110413
  Receipt Date: 20110413
  Transmission Date: 20111010
  Serious: Yes (Other)
  Sender: FDA-Public Use
  Company Number: None

PATIENT
  Age: 70 Year
  Sex: Female
  Weight: 52.1637 kg

DRUGS (3)
  1. RECLAST [Suspect]
     Indication: OSTEOPOROSIS
     Dosage: STANDARD 1X YEAR
     Dates: start: 20090309, end: 20100309
  2. RECLAST [Suspect]
     Indication: OSTEOPOROSIS
     Dosage: STANDARD 1X YEAR
     Dates: start: 20080204, end: 20090204
  3. FOSAMAX [Concomitant]

REACTIONS (1)
  - OSTEONECROSIS OF JAW [None]
